FAERS Safety Report 13670028 (Version 1)
Quarter: 2017Q2

REPORT INFORMATION
  Report Type: Spontaneous
  Country: US (occurrence: US)
  Receive Date: 20170620
  Receipt Date: 20170620
  Transmission Date: 20170830
  Serious: Yes (Hospitalization, Other)
  Sender: FDA-Public Use
  Company Number: US-BRISTOL-MYERS SQUIBB COMPANY-BMS-2017-053106

PATIENT
  Age: 74 Year
  Sex: Female

DRUGS (1)
  1. ELIQUIS [Suspect]
     Active Substance: APIXABAN
     Indication: CEREBROVASCULAR ACCIDENT PROPHYLAXIS
     Dosage: 5 MG, BID
     Route: 048
     Dates: end: 201705

REACTIONS (9)
  - Colon neoplasm [Unknown]
  - Transfusion [Unknown]
  - Haemorrhage [Unknown]
  - Pain in extremity [Recovered/Resolved]
  - Retching [Unknown]
  - Gastritis [Unknown]
  - Vomiting [Unknown]
  - Gait disturbance [Unknown]
  - Colon operation [Unknown]

NARRATIVE: CASE EVENT DATE: 201608
